FAERS Safety Report 9231424 (Version 2)
Quarter: 2013Q2

REPORT INFORMATION
  Report Type: Report from Study
  Country: FR (occurrence: FR)
  Receive Date: 20130415
  Receipt Date: 20130612
  Transmission Date: 20140414
  Serious: Yes (Hospitalization)
  Sender: FDA-Public Use
  Company Number: FR-TEVA-396836ISR

PATIENT
  Age: 61 Year
  Sex: Female

DRUGS (6)
  1. MYOCET [Suspect]
     Indication: OVARIAN CANCER RECURRENT
     Route: 065
     Dates: start: 20130212
  2. CARBOPLATINE [Suspect]
     Indication: OVARIAN CANCER RECURRENT
     Route: 065
     Dates: start: 20130212
  3. INEXIUM [Concomitant]
     Route: 048
  4. NEULASTA [Concomitant]
     Route: 058
  5. LEVOTHYROX [Concomitant]
     Route: 048
  6. LESCOL [Concomitant]
     Route: 048

REACTIONS (1)
  - Phlebitis [Recovered/Resolved with Sequelae]
